FAERS Safety Report 8925051 (Version 1)
Quarter: 2012Q4

REPORT INFORMATION
  Report Type: 
  Country: SE (occurrence: SE)
  Receive Date: 20121126
  Receipt Date: 20121126
  Transmission Date: 20130627
  Serious: Yes (Death)
  Sender: FDA-Public Use
  Company Number: SE-ROCHE-1159671

PATIENT
  Age: 40 Year
  Sex: Male

DRUGS (1)
  1. VISMODEGIB [Suspect]
     Indication: MEDULLOBLASTOMA
     Route: 065

REACTIONS (1)
  - Death [Fatal]
